FAERS Safety Report 18213657 (Version 2)
Quarter: 2020Q4

REPORT INFORMATION
  Report Type: Report from Study
  Country: CA (occurrence: CA)
  Receive Date: 20200831
  Receipt Date: 20201104
  Transmission Date: 20210113
  Serious: Yes (Hospitalization, Other)
  Sender: FDA-Public Use
  Company Number: CA-TAKEDA-2020TUS034841

PATIENT
  Age: 63 Year
  Sex: Male
  Weight: 82 kg

DRUGS (4)
  1. IXAZOMIB [Suspect]
     Active Substance: IXAZOMIB
     Indication: PLASMA CELL MYELOMA
     Dosage: 4 MILLIGRAM
     Route: 048
     Dates: start: 20200729
  2. REVLIMID [Suspect]
     Active Substance: LENALIDOMIDE
     Indication: PLASMA CELL MYELOMA
     Dosage: UNK
     Route: 065
     Dates: start: 20200729
  3. DEXAMETHASONE. [Suspect]
     Active Substance: DEXAMETHASONE
     Indication: PLASMA CELL MYELOMA
     Dosage: UNK
     Route: 065
  4. REVLIMID [Suspect]
     Active Substance: LENALIDOMIDE
     Dosage: 15 MILLIGRAM, QD
     Route: 048
     Dates: start: 20200824

REACTIONS (11)
  - Tremor [Recovered/Resolved]
  - Chills [Recovered/Resolved]
  - Product dose omission issue [Unknown]
  - Urosepsis [Unknown]
  - Neutrophil count increased [Unknown]
  - Asthenia [Recovered/Resolved]
  - Treatment noncompliance [Unknown]
  - Depressed level of consciousness [Unknown]
  - White blood cell count increased [Unknown]
  - Decubitus ulcer [Recovered/Resolved]
  - Urinary tract infection [Unknown]

NARRATIVE: CASE EVENT DATE: 20200824
